FAERS Safety Report 9193968 (Version 1)
Quarter: 2013Q1

REPORT INFORMATION
  Report Type: Spontaneous
  Country: MX (occurrence: MX)
  Receive Date: 20130327
  Receipt Date: 20130327
  Transmission Date: 20140127
  Serious: Yes (Other)
  Sender: FDA-Public Use
  Company Number: PHHY2013MX029890

PATIENT
  Age: 70 Year
  Sex: Male

DRUGS (2)
  1. EXFORGE [Suspect]
     Indication: HYPERTENSION
     Dosage: 1 DF (160/5MG), DAILY
     Route: 048
     Dates: start: 200903, end: 201108
  2. EXFORGE [Suspect]
     Dosage: UNK DF, UNK
     Dates: start: 201303

REACTIONS (1)
  - Neoplasm [Recovered/Resolved]
